FAERS Safety Report 16131706 (Version 1)
Quarter: 2019Q1

REPORT INFORMATION
  Report Type: Spontaneous
  Country: US (occurrence: US)
  Receive Date: 20190225
  Receipt Date: 20190225
  Transmission Date: 20190418
  Serious: No
  Sender: FDA-Public Use
  Company Number: None

PATIENT
  Sex: Male

DRUGS (1)
  1. DALFAMPRIDINE ER++ 10MG MYLAN [Suspect]
     Active Substance: DALFAMPRIDINE
     Indication: MULTIPLE SCLEROSIS
     Route: 048
     Dates: start: 20181020

REACTIONS (4)
  - Fall [None]
  - Product substitution issue [None]
  - Coordination abnormal [None]
  - Dizziness [None]
